FAERS Safety Report 6077001-3 (Version None)
Quarter: 2009Q1

REPORT INFORMATION
  Report Type: 
  Country: None (occurrence: None)
  Receive Date: 20090211
  Receipt Date: 20090130
  Transmission Date: 20090719
  Serious: Yes (Death, Hospitalization)
  Sender: FDA-Public Use
  Company Number: SPV1-2009-00176

PATIENT
  Age: 32 Year
  Sex: Male

DRUGS (1)
  1. ELAPRASE [Suspect]
     Indication: MUCOPOLYSACCHARIDOSIS II
     Dosage: IV DRIP
     Route: 041
     Dates: start: 20070911

REACTIONS (6)
  - DISEASE COMPLICATION [None]
  - MUCOPOLYSACCHARIDOSIS II [None]
  - PROCEDURAL COMPLICATION [None]
  - SHUNT INFECTION [None]
  - STAPHYLOCOCCAL INFECTION [None]
  - TRACHEOSTOMY MALFUNCTION [None]
